FAERS Safety Report 9466466 (Version 1)
Quarter: 2013Q3

REPORT INFORMATION
  Report Type: Spontaneous
  Country: US (occurrence: US)
  Receive Date: 20130820
  Receipt Date: 20130820
  Transmission Date: 20140515
  Serious: Yes (Hospitalization)
  Sender: FDA-Public Use
  Company Number: US-BAYER-2013-097978

PATIENT
  Age: 31 Year
  Sex: Female

DRUGS (2)
  1. MIRENA [Suspect]
     Indication: CONTRACEPTION
     Dosage: 20 MCG/24HR, CONT
     Route: 015
     Dates: start: 201101, end: 201305
  2. MIRENA [Suspect]
     Indication: MENORRHAGIA

REACTIONS (5)
  - Ovarian cystectomy [None]
  - Procedural pain [None]
  - Migraine [Recovering/Resolving]
  - Pelvic pain [Recovering/Resolving]
  - Alopecia [Recovering/Resolving]
